FAERS Safety Report 25575155 (Version 1)
Quarter: 2025Q3

REPORT INFORMATION
  Report Type: Spontaneous
  Country: US (occurrence: US)
  Receive Date: 20250718
  Receipt Date: 20250718
  Transmission Date: 20251020
  Serious: No
  Sender: TOLMAR
  Company Number: US-TOLMAR-TLM-852-00

PATIENT
  Age: 38 Year
  Sex: Female

DRUGS (1)
  1. TESTOSTERONE [Suspect]
     Active Substance: TESTOSTERONE
     Indication: Dry eye
     Route: 047

REACTIONS (2)
  - Acne [Recovered/Resolved]
  - Off label use [Recovered/Resolved]
